FAERS Safety Report 4632234-5 (Version None)
Quarter: 2005Q2

REPORT INFORMATION
  Report Type: 
  Country: None (occurrence: None)
  Receive Date: 20050411
  Receipt Date: 20041012
  Transmission Date: 20051028
  Serious: Yes (Hospitalization)
  Sender: FDA-Public Use
  Company Number: US-ROCHE-383207

PATIENT
  Age: 46 Year
  Sex: Female
  Weight: 113.4 kg

DRUGS (5)
  1. PEGASYS [Suspect]
     Indication: HEPATITIS C
     Route: 058
     Dates: start: 20040412, end: 20041001
  2. COPEGUS [Suspect]
     Indication: HEPATITIS C
     Dosage: 200MG BID AM, 200 MG BID PM
     Route: 048
     Dates: start: 20040412, end: 20041001
  3. NEXIUM [Concomitant]
     Route: 048
  4. AZMACORT [Concomitant]
     Indication: ASTHMA
     Route: 055
  5. ALBUTEROL [Concomitant]
     Indication: ASTHMA
     Route: 055

REACTIONS (6)
  - ABDOMINAL PAIN UPPER [None]
  - DYSPNOEA [None]
  - PULMONARY EMBOLISM [None]
  - SINUSITIS [None]
  - THROMBOPHLEBITIS [None]
  - VOMITING [None]
